FAERS Safety Report 13320791 (Version 1)
Quarter: 2017Q1

REPORT INFORMATION
  Report Type: Spontaneous
  Country: FR (occurrence: FR)
  Receive Date: 20170310
  Receipt Date: 20170310
  Transmission Date: 20170428
  Serious: Yes (Hospitalization, Other)
  Sender: FDA-Public Use
  Company Number: FR-ASTRAZENECA-2017SE24398

PATIENT
  Age: 25460 Day
  Sex: Male

DRUGS (4)
  1. HYTACAND [Suspect]
     Active Substance: CANDESARTAN CILEXETIL\HYDROCHLOROTHIAZIDE
     Dosage: 16 MG/12.5 MG, 1 TABLET/DAY
     Route: 048
  2. CHONDROSULF [Suspect]
     Active Substance: CHONDROITIN SULFATE (CHICKEN)
     Route: 048
     Dates: start: 201607
  3. LOCOID [Suspect]
     Active Substance: HYDROCORTISONE BUTYRATE
     Indication: ECZEMA
     Route: 003
  4. FENOFIBRATE. [Suspect]
     Active Substance: FENOFIBRATE
     Indication: HYPERCHOLESTEROLAEMIA
     Route: 048
     Dates: start: 201609

REACTIONS (3)
  - Pancreatitis necrotising [Not Recovered/Not Resolved]
  - Ileus paralytic [Unknown]
  - Ascites [Unknown]

NARRATIVE: CASE EVENT DATE: 20170211
